FAERS Safety Report 23785612 (Version 1)
Quarter: 2024Q2

REPORT INFORMATION
  Report Type: Spontaneous
  Country: US (occurrence: US)
  Receive Date: 20240425
  Receipt Date: 20240425
  Transmission Date: 20240716
  Serious: Yes (Other)
  Sender: FDA-Public Use
  Company Number: US-BRISTOL-MYERS SQUIBB COMPANY-2024-060195

PATIENT
  Age: 79 Year
  Sex: Male

DRUGS (1)
  1. LENALIDOMIDE [Suspect]
     Active Substance: LENALIDOMIDE
     Indication: Plasma cell myeloma in remission
     Dosage: FREQUENCY: 1 CAPSULE BY MOUTH EVERY DAY FOR 14 DAYS ON FOLLOWED BY 7 DAYS OFF. FOR A 21-DAY CYCLE.
     Route: 048

REACTIONS (2)
  - Cardiac disorder [Unknown]
  - Off label use [Unknown]
